FAERS Safety Report 6940753-1 (Version None)
Quarter: 2010Q3

REPORT INFORMATION
  Report Type: 
  Country: None (occurrence: None)
  Receive Date: 20100825
  Receipt Date: 20100811
  Transmission Date: 20110219
  Serious: Yes (Disabling)
  Sender: FDA-Public Use
  Company Number: US-ELI_LILLY_AND_COMPANY-US201007004589

PATIENT
  Age: 49 Year
  Sex: Female

DRUGS (2)
  1. ZYPREXA [Suspect]
     Indication: MOOD ALTERED
  2. CELEBREX [Concomitant]

REACTIONS (13)
  - BACK PAIN [None]
  - BLOOD CREATININE INCREASED [None]
  - DEPRESSION [None]
  - DISABILITY [None]
  - DIZZINESS [None]
  - FEELING ABNORMAL [None]
  - FLUID RETENTION [None]
  - HYPERTENSION [None]
  - MALAISE [None]
  - OEDEMA PERIPHERAL [None]
  - OFF LABEL USE [None]
  - OVERWEIGHT [None]
  - PAIN [None]
